FAERS Safety Report 10419092 (Version 2)
Quarter: 2014Q3

REPORT INFORMATION
  Report Type: Spontaneous
  Country: US (occurrence: US)
  Receive Date: 20140829
  Receipt Date: 20140910
  Transmission Date: 20150326
  Serious: No
  Sender: FDA-Public Use
  Company Number: US-PFIZER INC-2014237125

PATIENT
  Age: 63 Year
  Sex: Male

DRUGS (1)
  1. SPIRONOLACTONE. [Suspect]
     Active Substance: SPIRONOLACTONE
     Indication: HYPERTENSION
     Dosage: UNK

REACTIONS (7)
  - Fatigue [Recovered/Resolved]
  - Pollakiuria [Recovered/Resolved]
  - Libido decreased [Recovered/Resolved]
  - Blood sodium decreased [Unknown]
  - Somnolence [Recovered/Resolved]
  - Blood potassium increased [Unknown]
  - Feeling abnormal [Recovered/Resolved]
